FAERS Safety Report 12381064 (Version 2)
Quarter: 2016Q2

REPORT INFORMATION
  Report Type: Spontaneous
  Country: FR (occurrence: FR)
  Receive Date: 20160518
  Receipt Date: 20160620
  Transmission Date: 20160815
  Serious: Yes (Other)
  Sender: FDA-Public Use
  Company Number: FR-ROCHE-1759262

PATIENT
  Sex: Female
  Weight: 57 kg

DRUGS (2)
  1. XOLAIR [Suspect]
     Active Substance: OMALIZUMAB
     Indication: BLOOD IMMUNOGLOBULIN E INCREASED
     Dosage: 300 MG EVERY 4 WEEKS
     Route: 058
     Dates: start: 201605, end: 201605
  2. XOLAIR [Suspect]
     Active Substance: OMALIZUMAB
     Indication: ASTHMA
     Dosage: UNK
     Route: 058
     Dates: start: 201510

REACTIONS (3)
  - Loss of consciousness [Unknown]
  - Syncope [Not Recovered/Not Resolved]
  - Malaise [Unknown]
